FAERS Safety Report 6242594-X (Version None)
Quarter: 2009Q2

REPORT INFORMATION
  Report Type: 
  Country: None (occurrence: None)
  Receive Date: 20090622
  Receipt Date: 20090622
  Transmission Date: 20091009
  Serious: Yes (Other)
  Sender: FDA-Public Use
  Company Number: None

PATIENT
  Sex: Male
  Weight: 90.7194 kg

DRUGS (1)
  1. ACTOPLUS MET [Suspect]
     Indication: DIABETES MELLITUS
     Dosage: 1 TWICE DAILY PO
     Route: 048
     Dates: start: 20060801, end: 20090617

REACTIONS (11)
  - ARTHRALGIA [None]
  - ASTHENIA [None]
  - DIZZINESS [None]
  - DYSPNOEA [None]
  - FATIGUE [None]
  - FEELING COLD [None]
  - IMPAIRED WORK ABILITY [None]
  - NAUSEA [None]
  - PAIN IN EXTREMITY [None]
  - PRESYNCOPE [None]
  - VISION BLURRED [None]
